FAERS Safety Report 6696891-4 (Version None)
Quarter: 2010Q2

REPORT INFORMATION
  Report Type: 
  Country: None (occurrence: None)
  Receive Date: 20100426
  Receipt Date: 20100413
  Transmission Date: 20101027
  Serious: Yes (Other)
  Sender: FDA-Public Use
  Company Number: PHHY2010BR23205

PATIENT
  Age: 63 Year
  Sex: Female
  Weight: 73 kg

DRUGS (1)
  1. DIOVAN [Suspect]
     Dosage: 1 TABLET A DAY (320 MG)

REACTIONS (7)
  - BLOOD PRESSURE INCREASED [None]
  - ERYTHEMA [None]
  - HYPERSENSITIVITY [None]
  - PRURITUS [None]
  - RETINAL PIGMENTATION [None]
  - SOMNOLENCE [None]
  - URTICARIA [None]
